FAERS Safety Report 8502825-X (Version None)
Quarter: 2012Q3

REPORT INFORMATION
  Report Type: 
  Country: None (occurrence: None)
  Receive Date: 20120711
  Receipt Date: 20120703
  Transmission Date: 20120928
  Serious: Yes (Disabling)
  Sender: FDA-Public Use
  Company Number: CA-PFIZER INC-2012163902

PATIENT
  Age: 66 Year
  Sex: Female

DRUGS (1)
  1. PANTOPRAZOLE SODIUM [Suspect]
     Dosage: 40 MG, DAILY
     Route: 065
     Dates: start: 20070101

REACTIONS (2)
  - BLINDNESS [None]
  - VISUAL IMPAIRMENT [None]
